FAERS Safety Report 19371851 (Version 11)
Quarter: 2022Q1

REPORT INFORMATION
  Report Type: Spontaneous
  Country: US (occurrence: US)
  Receive Date: 20210603
  Receipt Date: 20220322
  Transmission Date: 20220423
  Serious: Yes (Other)
  Sender: FDA-Public Use
  Company Number: US-SA-SAC20210531000054

PATIENT
  Age: 33 Year
  Sex: Male

DRUGS (2)
  1. ELOCTATE [Suspect]
     Active Substance: (1-743)-(1638-2332)-BLOOD-COAGULATION FACTOR VIII (SYNTHETIC HUMAN) FUSION PROTEIN WITH IMMUNOGLOBUL
     Dosage: 5000 IU, PRN
     Route: 042
  2. ELOCTATE [Suspect]
     Active Substance: (1-743)-(1638-2332)-BLOOD-COAGULATION FACTOR VIII (SYNTHETIC HUMAN) FUSION PROTEIN WITH IMMUNOGLOBUL
     Dosage: 5000 IU, PRN
     Route: 042

REACTIONS (11)
  - Haemorrhage [Unknown]
  - Haemorrhage [Recovered/Resolved]
  - Ligament sprain [Unknown]
  - Traumatic haemorrhage [Recovered/Resolved]
  - Epistaxis [Recovered/Resolved]
  - Limb injury [Unknown]
  - Limb injury [Unknown]
  - Ligament sprain [Unknown]
  - Joint swelling [Unknown]
  - Traumatic haemorrhage [Recovered/Resolved]
  - Surgery [Unknown]

NARRATIVE: CASE EVENT DATE: 20210520
